FAERS Safety Report 7910261-X (Version None)
Quarter: 2011Q4

REPORT INFORMATION
  Report Type: 
  Country: None (occurrence: None)
  Receive Date: 20111111
  Receipt Date: 20111102
  Transmission Date: 20120403
  Serious: Yes (Hospitalization, Other)
  Sender: FDA-Public Use
  Company Number: US-ABBOTT-11P-163-0870508-00

PATIENT
  Age: 7 Month
  Sex: Female
  Weight: 9.4 kg

DRUGS (5)
  1. PENTOBARBITAL CAP [Suspect]
     Indication: SEDATION
  2. DIPHENHYDRAMINE HCL [Suspect]
     Indication: SEDATION
  3. LORAZEPAM [Suspect]
     Indication: SEDATION
  4. FENTANYL [Suspect]
     Indication: SEDATION
  5. HYDROMORPHONE HCL [Suspect]
     Indication: SEDATION

REACTIONS (1)
  - DELIRIUM [None]
